FAERS Safety Report 4475602-7 (Version None)
Quarter: 2004Q3

REPORT INFORMATION
  Report Type: 
  Country: None (occurrence: None)
  Receive Date: 20040923
  Receipt Date: 20040712
  Transmission Date: 20050211
  Serious: No
  Sender: FDA-Public Use
  Company Number: USA040772462

PATIENT
  Age: 73 Year
  Sex: Female

DRUGS (5)
  1. FORTEO [Suspect]
     Indication: OSTEOPOROSIS
     Dosage: UNK
     Route: 065
     Dates: start: 20030101
  2. PROZAC [Concomitant]
  3. SYNTHROID [Concomitant]
  4. BEXTRA [Concomitant]
  5. VIOXX [Concomitant]

REACTIONS (9)
  - COUGH [None]
  - FEELING ABNORMAL [None]
  - FLUID RETENTION [None]
  - HYPERSENSITIVITY [None]
  - INCREASED APPETITE [None]
  - INJECTION SITE ERYTHEMA [None]
  - RESPIRATORY DISORDER [None]
  - URTICARIA [None]
  - WEIGHT INCREASED [None]
